FAERS Safety Report 10160753 (Version 2)
Quarter: 2014Q2

REPORT INFORMATION
  Report Type: Spontaneous
  Country: GB (occurrence: GB)
  Receive Date: 20140508
  Receipt Date: 20140508
  Transmission Date: 20141212
  Serious: Yes (Other)
  Sender: FDA-Public Use
  Company Number: PHHY2014GB051544

PATIENT
  Age: 4 Year
  Sex: Male

DRUGS (5)
  1. TERBINAFINE [Suspect]
     Indication: OSTEOMYELITIS FUNGAL
  2. VORICONAZOLE [Suspect]
     Indication: OSTEOMYELITIS FUNGAL
  3. CO-AMOXICLAV [Concomitant]
  4. FLUCLOXACILLIN [Concomitant]
     Route: 042
  5. FUSIDIC ACID [Concomitant]
     Route: 042

REACTIONS (3)
  - Hallucination [Unknown]
  - Nail discolouration [Unknown]
  - Rash [Unknown]
